FAERS Safety Report 4796893-9 (Version None)
Quarter: 2005Q3

REPORT INFORMATION
  Report Type: 
  Country: None (occurrence: None)
  Receive Date: 20050916
  Receipt Date: 20050120
  Transmission Date: 20060218
  Serious: Yes (Other)
  Sender: FDA-Public Use
  Company Number: US-JNJFOC-20050105310

PATIENT
  Sex: Female

DRUGS (2)
  1. TOPAMAX [Suspect]
     Indication: CONVULSION
     Dosage: 200 MG, 1 IN 1 DAY, ORAL;  100 MG, 2 IN 1 DAY, ORAL
     Route: 048
     Dates: end: 20040101
  2. TOPAMAX [Suspect]
     Indication: CONVULSION
     Dosage: 200 MG, 1 IN 1 DAY, ORAL;  100 MG, 2 IN 1 DAY, ORAL
     Route: 048
     Dates: start: 20040101

REACTIONS (1)
  - CONVULSION [None]
